FAERS Safety Report 10949357 (Version 5)
Quarter: 2016Q4

REPORT INFORMATION
  Report Type: Other
  Country: JP (occurrence: JP)
  Receive Date: 20150324
  Receipt Date: 20161202
  Transmission Date: 20170206
  Serious: Yes (Other)
  Sender: FDA-Public Use
  Company Number: JP-ACTELION-A-CH2013-77422

PATIENT
  Age: 26 Year
  Sex: Male

DRUGS (18)
  1. BRAZAVES [Interacting]
     Active Substance: MIGLUSTAT
     Dosage: 133.33 MG, TID
     Route: 048
     Dates: start: 20130202, end: 20130228
  2. AMINO ACIDS NOS W/ELECTROLYTES NOS/NICOTINAMI [Concomitant]
  3. BRAZAVES [Interacting]
     Active Substance: MIGLUSTAT
     Dosage: 166.66 MG, TID
     Route: 048
     Dates: start: 20150213, end: 20150302
  4. BRAZAVES [Interacting]
     Active Substance: MIGLUSTAT
     Dosage: 166.66 MG, TID
     Route: 048
     Dates: start: 20150309
  5. BROMHEXINE HYDROCHLORIDE [Concomitant]
     Active Substance: BROMHEXINE HYDROCHLORIDE
  6. BRAZAVES [Suspect]
     Active Substance: MIGLUSTAT
     Indication: NIEMANN-PICK DISEASE
     Dosage: 200 MG, TID
     Route: 048
     Dates: start: 20121210, end: 20121213
  7. BRAZAVES [Interacting]
     Active Substance: MIGLUSTAT
     Dosage: 100 MG, TID
     Route: 048
     Dates: start: 20121214, end: 20130201
  8. LORATADINE. [Concomitant]
     Active Substance: LORATADINE
  9. AMBROXOL [Concomitant]
     Active Substance: AMBROXOL
  10. RINGER ACETAT [Concomitant]
  11. UNASYN [Interacting]
     Active Substance: AMPICILLIN SODIUM\SULBACTAM SODIUM
     Indication: PNEUMONIA
     Dosage: 12 G, OD
     Route: 048
     Dates: start: 20150209, end: 20150216
  12. UNASYN [Interacting]
     Active Substance: AMPICILLIN SODIUM\SULBACTAM SODIUM
     Dosage: 12 G, OD
     Route: 048
     Dates: start: 20150520, end: 20150525
  13. URSODEOXYCHOLIC ACID [Concomitant]
     Active Substance: URSODIOL
  14. BRAZAVES [Interacting]
     Active Substance: MIGLUSTAT
     Dosage: 166.66 MG, TID
     Route: 048
     Dates: start: 20130301, end: 20150209
  15. TRIHEXYPHENIDYL HYDROCHLORIDE. [Concomitant]
     Active Substance: TRIHEXYPHENIDYL HYDROCHLORIDE
  16. SODIUM CHLORIDE. [Concomitant]
     Active Substance: SODIUM CHLORIDE
  17. HYDROXYZINE [Concomitant]
     Active Substance: HYDROXYZINE\HYDROXYZINE HYDROCHLORIDE
  18. UNASYN [Interacting]
     Active Substance: AMPICILLIN SODIUM\SULBACTAM SODIUM
     Indication: PYREXIA
     Dosage: 12 G, OD
     Route: 048
     Dates: start: 20150227, end: 20150302

REACTIONS (8)
  - Nausea [Recovered/Resolved]
  - Diarrhoea [Recovered/Resolved]
  - Cytopenia [Recovered/Resolved]
  - White blood cell count decreased [Recovered/Resolved]
  - Red blood cell count decreased [Recovered/Resolved]
  - Drug interaction [Recovered/Resolved]
  - Pneumonia aspiration [Recovered/Resolved]
  - Platelet count decreased [Recovered/Resolved]

NARRATIVE: CASE EVENT DATE: 20121213
